FAERS Safety Report 5027440-4 (Version None)
Quarter: 2006Q2

REPORT INFORMATION
  Report Type: 
  Country: None (occurrence: None)
  Receive Date: 20060501
  Receipt Date: 20060123
  Transmission Date: 20061013
  Serious: No
  Sender: FDA-Public Use
  Company Number: 200610461BWH

PATIENT
  Age: 52 Year
  Sex: Male

DRUGS (11)
  1. NEXAVAR [Suspect]
     Indication: RENAL CELL CARCINOMA STAGE UNSPECIFIED
     Dosage: 400 MG, BID, ORAL
     Route: 048
     Dates: start: 20060101
  2. COMPAZINE [Concomitant]
  3. POTASSIUM [Concomitant]
  4. LASIX [Concomitant]
  5. PAXIL [Concomitant]
  6. PROTONIX [Concomitant]
  7. INDOMETHACIN [Concomitant]
  8. XANAX [Concomitant]
  9. DICYCLOMINE [Concomitant]
  10. OXYCODONE HCL [Concomitant]
  11. ALPRAZOLAM [Concomitant]

REACTIONS (6)
  - DRY MOUTH [None]
  - DYSKINESIA [None]
  - PARAESTHESIA ORAL [None]
  - STOMACH DISCOMFORT [None]
  - TONGUE BLISTERING [None]
  - WEIGHT DECREASED [None]
